FAERS Safety Report 7825731-2 (Version None)
Quarter: 2011Q4

REPORT INFORMATION
  Report Type: 
  Country: None (occurrence: None)
  Receive Date: 20111019
  Receipt Date: 20111014
  Transmission Date: 20120403
  Serious: Yes (Other)
  Sender: FDA-Public Use
  Company Number: US-BAYER-2011-018411

PATIENT
  Age: 48 Year
  Sex: Male
  Weight: 109 kg

DRUGS (5)
  1. FAMVIR [PENCICLOVIR] [Concomitant]
  2. PREDNISONE [Concomitant]
  3. MAGNEVIST [Suspect]
     Indication: NUCLEAR MAGNETIC RESONANCE IMAGING
     Dosage: 20 ML, UNK
     Route: 042
     Dates: start: 20110221, end: 20110221
  4. VICODIN [Concomitant]
  5. FLAXSEED OIL [Concomitant]

REACTIONS (10)
  - CHEST DISCOMFORT [None]
  - LIP SWELLING [None]
  - NAUSEA [None]
  - VOMITING [None]
  - CONTRAST MEDIA REACTION [None]
  - HYPOAESTHESIA [None]
  - EYE SWELLING [None]
  - COUGH [None]
  - DYSPNOEA [None]
  - SWELLING FACE [None]
